FAERS Safety Report 5858910-4 (Version None)
Quarter: 2008Q3

REPORT INFORMATION
  Report Type: 
  Country: None (occurrence: None)
  Receive Date: 20080825
  Receipt Date: 20080815
  Transmission Date: 20090109
  Serious: Yes (Other)
  Sender: FDA-Public Use
  Company Number: TPA2008A01310

PATIENT
  Age: 70 Year
  Sex: Female
  Weight: 74.3899 kg

DRUGS (6)
  1. ACTOS (PIOGLITIAZONE HYDROCHLORIDE) (45 MILLIGRAM, TABLETS) [Suspect]
     Indication: TYPE 2 DIABETES MELLITUS
     Dosage: 45 MG, 1 IN 1 D, PER ORAL
     Route: 048
     Dates: start: 20040815
  2. METFORMIN (METFORMIN) (TABLETS) [Concomitant]
  3. METHOCARBAM (METHOCARBAMOL) [Concomitant]
  4. NEXIUM [Concomitant]
  5. LISINOPRIL [Concomitant]
  6. VYTORIN [Concomitant]

REACTIONS (8)
  - ABASIA [None]
  - ATRIOVENTRICULAR BLOCK [None]
  - BREAST CANCER FEMALE [None]
  - FATIGUE [None]
  - FEELING ABNORMAL [None]
  - HEART VALVE INCOMPETENCE [None]
  - SURGERY [None]
  - TREMOR [None]
